FAERS Safety Report 12957888 (Version 3)
Quarter: 2017Q2

REPORT INFORMATION
  Report Type: Spontaneous
  Country: FR (occurrence: FR)
  Receive Date: 20161118
  Receipt Date: 20170526
  Transmission Date: 20170830
  Serious: Yes (Other)
  Sender: FDA-Public Use
  Company Number: FR-ABBVIE-16P-056-1786065-00

PATIENT
  Sex: Female

DRUGS (9)
  1. ZITHROMAX [Suspect]
     Active Substance: AZITHROMYCIN DIHYDRATE
     Indication: MATERNAL EXPOSURE DURING PREGNANCY
     Route: 064
  2. MOPRAL [Suspect]
     Active Substance: OMEPRAZOLE SODIUM
     Indication: MATERNAL EXPOSURE DURING PREGNANCY
     Route: 064
  3. SPECIAFOLDINE [Suspect]
     Active Substance: FOLIC ACID
     Indication: MATERNAL EXPOSURE DURING PREGNANCY
     Route: 064
  4. AUGMENTIN [Suspect]
     Active Substance: AMOXICILLIN\CLAVULANATE POTASSIUM
     Indication: MATERNAL EXPOSURE DURING PREGNANCY
     Route: 064
  5. AERIUS [Suspect]
     Active Substance: DESLORATADINE
     Indication: MATERNAL EXPOSURE DURING PREGNANCY
     Route: 064
  6. CREON [Suspect]
     Active Substance: PANCRELIPASE AMYLASE\PANCRELIPASE LIPASE\PANCRELIPASE PROTEASE
     Indication: MATERNAL EXPOSURE DURING PREGNANCY
     Route: 064
  7. ORELOX [Suspect]
     Active Substance: CEFPODOXIME
     Indication: MATERNAL EXPOSURE DURING PREGNANCY
     Route: 064
  8. SINGULAIR [Suspect]
     Active Substance: MONTELUKAST SODIUM
     Indication: MATERNAL EXPOSURE DURING PREGNANCY
     Route: 064
  9. VENTILASTIN  NOVOLIZER [Suspect]
     Active Substance: ALBUTEROL SULFATE
     Indication: MATERNAL EXPOSURE DURING PREGNANCY
     Route: 064

REACTIONS (3)
  - Foetal arrhythmia [Unknown]
  - Premature baby [Unknown]
  - Foetal exposure during pregnancy [Unknown]

NARRATIVE: CASE EVENT DATE: 2016
